FAERS Safety Report 26119644 (Version 2)
Quarter: 2025Q4

REPORT INFORMATION
  Report Type: Report from Study
  Country: CA (occurrence: CA)
  Receive Date: 20251204
  Receipt Date: 20251230
  Transmission Date: 20260118
  Serious: Yes (Hospitalization, Other)
  Sender: CELLTRION
  Company Number: CA-CELLTRION INC.-2025CA043739

PATIENT

DRUGS (3)
  1. OMALIZUMAB [Suspect]
     Active Substance: OMALIZUMAB
     Indication: Chronic spontaneous urticaria
     Dosage: 300 MG (MAINTENANCE) EVERY 4 WEEKS
     Route: 058
     Dates: start: 20251029
  2. BETAMETHASONE [Concomitant]
     Active Substance: BETAMETHASONE
     Indication: Urticaria
     Dosage: 0.1 PERCENT
     Route: 061
  3. DESVENLAFAXINE [Concomitant]
     Active Substance: DESVENLAFAXINE
     Dosage: 50 MG, ONCE DAILY

REACTIONS (5)
  - Visual impairment [Recovering/Resolving]
  - Corneal oedema [Recovering/Resolving]
  - Hypertension [Unknown]
  - Eye infection [Not Recovered/Not Resolved]
  - Nervousness [Unknown]

NARRATIVE: CASE EVENT DATE: 20251126
